FAERS Safety Report 4971479-1 (Version None)
Quarter: 2006Q2

REPORT INFORMATION
  Report Type: 
  Country: None (occurrence: None)
  Receive Date: 20060413
  Receipt Date: 20050915
  Transmission Date: 20061013
  Serious: Yes (Other)
  Sender: FDA-Public Use
  Company Number: PHBS2005ZA13730

PATIENT
  Age: 57 Year
  Sex: Female
  Weight: 64 kg

DRUGS (3)
  1. PREDNISONE [Concomitant]
     Dosage: UNK, QMO
  2. MELPHALAN [Concomitant]
     Dosage: UNK, QMO
  3. ZOMETA [Suspect]
     Indication: MULTIPLE MYELOMA
     Dosage: 4 MG, QMO
     Route: 042
     Dates: start: 20030201, end: 20050106

REACTIONS (2)
  - OSTEONECROSIS [None]
  - PLASTIC SURGERY [None]
